FAERS Safety Report 20877891 (Version 1)
Quarter: 2022Q2

REPORT INFORMATION
  Report Type: Spontaneous
  Country: US (occurrence: US)
  Receive Date: 20220526
  Receipt Date: 20220526
  Transmission Date: 20220720
  Serious: Yes (Hospitalization)
  Sender: FDA-Public Use
  Company Number: US-MYLANLABS-2022M1038814

PATIENT
  Age: 83 Year
  Sex: Male

DRUGS (4)
  1. VALPROIC ACID [Suspect]
     Active Substance: VALPROIC ACID
     Indication: Dementia
     Dosage: 500 MILLIGRAM,Q8
     Route: 065
  2. VALPROIC ACID [Suspect]
     Active Substance: VALPROIC ACID
     Indication: Behaviour disorder
  3. RISPERIDONE [Concomitant]
     Active Substance: RISPERIDONE
     Indication: Product used for unknown indication
     Dosage: 0.25 MILLIGRAM,Q12
     Route: 065
  4. BENZTROPINE [Concomitant]
     Active Substance: BENZTROPINE
     Indication: Tremor
     Dosage: UNK
     Route: 065

REACTIONS (5)
  - Encephalopathy [Recovering/Resolving]
  - Tremor [Recovering/Resolving]
  - Thrombocytopenia [Recovering/Resolving]
  - Hyperammonaemia [Recovering/Resolving]
  - Off label use [Unknown]
